FAERS Safety Report 25563799 (Version 1)
Quarter: 2025Q3

REPORT INFORMATION
  Report Type: Spontaneous
  Country: US (occurrence: US)
  Receive Date: 20250716
  Receipt Date: 20250716
  Transmission Date: 20251020
  Serious: Yes (Other)
  Sender: AMGEN
  Company Number: US-AMGEN-USASP2025136915

PATIENT
  Age: 57 Year
  Sex: Female

DRUGS (1)
  1. KRYSTEXXA [Suspect]
     Active Substance: PEGLOTICASE
     Indication: Gout
     Route: 065
     Dates: start: 202409

REACTIONS (4)
  - Nephropathy [Recovering/Resolving]
  - Neuropathy peripheral [Unknown]
  - Gait disturbance [Unknown]
  - Gout [Unknown]

NARRATIVE: CASE EVENT DATE: 20240101
